FAERS Safety Report 24368122 (Version 1)
Quarter: 2024Q3

REPORT INFORMATION
  Report Type: Spontaneous
  Country: SE (occurrence: SE)
  Receive Date: 20240926
  Receipt Date: 20240926
  Transmission Date: 20241017
  Serious: Yes (Other)
  Sender: TEVA
  Company Number: None

PATIENT
  Age: 44 Year
  Sex: Female

DRUGS (7)
  1. QUETIAPINE [Suspect]
     Active Substance: QUETIAPINE
     Indication: Product used for unknown indication
     Route: 065
  2. ACETAMINOPHEN [Concomitant]
     Active Substance: ACETAMINOPHEN
     Indication: Pain
     Dosage: 1-2 TABLETS AS NEEDED, MAXIMUM 8 TABLETS PER DAY
     Route: 065
     Dates: start: 20210209
  3. DEPO-PROVERA [Concomitant]
     Active Substance: MEDROXYPROGESTERONE ACETATE
     Indication: Contraception
     Dosage: 1 PRE-FILLED SYRINGE EVERY TWELVE WEEKS
     Route: 030
     Dates: start: 20170508
  4. LITHIUM SULFATE [Concomitant]
     Active Substance: LITHIUM SULFATE
     Indication: Product used for unknown indication
     Dosage: 2 PROLONGED-RELEASE TABLETS FOR BREAKFAST AND 2 PROLONGED-RELEASE TABLETS FOR DINNER
     Route: 065
     Dates: start: 20240617
  5. NORFLEX [Concomitant]
     Active Substance: ORPHENADRINE CITRATE
     Indication: Muscle tightness
     Route: 065
     Dates: start: 20240806
  6. ZOPICLONE [Concomitant]
     Active Substance: ZOPICLONE
     Indication: Product used for unknown indication
     Dosage: 1-2 TABLETS AT NIGHT IF NECESSARY
     Route: 065
     Dates: start: 20240607
  7. Folsyra Vitabalans [Concomitant]
     Indication: Folate deficiency
     Route: 065
     Dates: start: 20240312

REACTIONS (1)
  - Panic attack [Recovered/Resolved]

NARRATIVE: CASE EVENT DATE: 20240708
